FAERS Safety Report 7044774-2 (Version None)
Quarter: 2010Q3

REPORT INFORMATION
  Report Type: 
  Country: None (occurrence: None)
  Receive Date: 20100929
  Receipt Date: 20100621
  Transmission Date: 20110219
  Serious: No
  Sender: FDA-Public Use
  Company Number: US-WYE-H15791110

PATIENT
  Age: 57 Year
  Sex: Female
  Weight: 99.88 kg

DRUGS (4)
  1. PRISTIQ [Suspect]
     Indication: DEPRESSION
     Dosage: UNSPECIFIED DOSE 2 TIMES PER DAY, ORAL
     Route: 048
     Dates: start: 20090727
  2. PROMETRIUM [Concomitant]
  3. ALLEGRA [Concomitant]
  4. NASONEX [Concomitant]

REACTIONS (2)
  - FATIGUE [None]
  - HYPERHIDROSIS [None]
